FAERS Safety Report 14369702 (Version 1)
Quarter: 2018Q1

REPORT INFORMATION
  Report Type: Report from Study
  Country: None (occurrence: AE)
  Receive Date: 20180110
  Receipt Date: 20180110
  Transmission Date: 20180509
  Serious: Yes (Other)
  Sender: FDA-Public Use
  Company Number: AE-ABBVIE-17K-166-2158325-00

PATIENT
  Age: 45 Year
  Sex: Female

DRUGS (3)
  1. HUMIRA [Suspect]
     Active Substance: ADALIMUMAB
     Indication: CROHN^S DISEASE
     Route: 058
     Dates: start: 20171030
  2. CLEXAN [Concomitant]
     Active Substance: ENOXAPARIN SODIUM
     Indication: PREGNANCY
     Route: 050
     Dates: start: 20170811
  3. DUFASTON [Concomitant]
     Active Substance: DYDROGESTERONE
     Indication: PREGNANCY
     Route: 048
     Dates: start: 2017

REACTIONS (3)
  - Abortion spontaneous [Unknown]
  - Exposure during pregnancy [Unknown]
  - Foetal death [Unknown]

NARRATIVE: CASE EVENT DATE: 20171220
